FAERS Safety Report 6000255-6 (Version None)
Quarter: 2008Q4

REPORT INFORMATION
  Report Type: 
  Country: None (occurrence: None)
  Receive Date: 20081215
  Receipt Date: 20081119
  Transmission Date: 20090506
  Serious: Yes (Other)
  Sender: FDA-Public Use
  Company Number: JP-MERCK-0811USA03589M

PATIENT
  Age: 21 Year
  Sex: Female

DRUGS (3)
  1. DECADRON [Suspect]
     Indication: IMMUNISATION REACTION
     Route: 048
  2. DECADRON [Suspect]
     Indication: PROPHYLAXIS
     Route: 048
  3. RITODRINE HYDROCHLORIDE [Concomitant]
     Route: 065

REACTIONS (2)
  - DRUG EXPOSURE DURING PREGNANCY [None]
  - LABOUR COMPLICATION [None]
